FAERS Safety Report 4282120-8 (Version None)
Quarter: 2004Q1

REPORT INFORMATION
  Report Type: 
  Country: None (occurrence: None)
  Receive Date: 20040130
  Receipt Date: 20030826
  Transmission Date: 20041129
  Serious: Yes (Hospitalization)
  Sender: FDA-Public Use
  Company Number: US-BRISTOL-MYERS SQUIBB COMPANY-12366290

PATIENT
  Age: 26 Year
  Sex: Male
  Weight: 70 kg

DRUGS (1)
  1. TRAZODONE HCL [Suspect]
     Dosage: USUAL DOSE IS TRAZODONE HCL 100 MG DAILY. PER DR, CONSUMER IS CONTINUING WITH TREATMENT
     Route: 048
     Dates: start: 20030820, end: 20030820

REACTIONS (5)
  - DYSPNOEA [None]
  - NAUSEA [None]
  - OVERDOSE [None]
  - SOMNOLENCE [None]
  - SUICIDE ATTEMPT [None]
